FAERS Safety Report 15813804 (Version 2)
Quarter: 2019Q1

REPORT INFORMATION
  Report Type: Report from Study
  Country: US (occurrence: US)
  Receive Date: 20190111
  Receipt Date: 20190207
  Transmission Date: 20190417
  Serious: Yes (Hospitalization)
  Sender: FDA-Public Use
  Company Number: US-PFIZER INC-2019005371

PATIENT
  Age: 16 Year
  Sex: Male
  Weight: 64 kg

DRUGS (12)
  1. DOXORUBICIN HYDROCHLORIDE. [Concomitant]
     Active Substance: DOXORUBICIN HYDROCHLORIDE
     Dosage: 25 MG/M2, OVER 1-15 MIN ON DAYS 4 AND 5
     Route: 042
  2. PF-02341066 [Suspect]
     Active Substance: CRIZOTINIB
     Indication: ANAPLASTIC LARGE-CELL LYMPHOMA
     Dosage: 165 MG/M2, BID ON DAYS 1-21, CYCLIC
     Route: 048
     Dates: start: 20181203, end: 20181213
  3. DEXAMETHASONE. [Suspect]
     Active Substance: DEXAMETHASONE
     Indication: ANAPLASTIC LARGE-CELL LYMPHOMA
     Dosage: 5 MG/M2, BID ON DAYS 1-5, CYCLIC
     Route: 048
     Dates: start: 20181203, end: 20181207
  4. HYDROCORTISONE. [Concomitant]
     Active Substance: HYDROCORTISONE
     Indication: ANAPLASTIC LARGE-CELL LYMPHOMA
     Dosage: 7.5-12MG ON DAY 1 (AGE BASED DOSING)
     Route: 037
  5. CYCLOPHOSPHAMIDE. [Concomitant]
     Active Substance: CYCLOPHOSPHAMIDE
     Indication: ANAPLASTIC LARGE-CELL LYMPHOMA
     Dosage: 200 MG/M2, PROPHASE: OVER 15-30 MINUTES ON DAYS 1 AND 2, COURSE B: OVER 15-30 MINUTES ON DAYS 1-5
     Route: 042
  6. ETOPOSIDE. [Suspect]
     Active Substance: ETOPOSIDE
     Indication: ANAPLASTIC LARGE-CELL LYMPHOMA
     Dosage: 100 MG/M2, OVER 2 HOURS ON DAYS 4 AND 5, CYCLIC
     Route: 042
     Dates: start: 20181206, end: 20181207
  7. METHOTREXATE SODIUM. [Suspect]
     Active Substance: METHOTREXATE SODIUM
     Dosage: PROPHASE: 7.5-12MG IT ON DAY 1 (AGE BASED DOSING)
     Route: 037
  8. DEXAMETHASONE. [Suspect]
     Active Substance: DEXAMETHASONE
     Dosage: 5 MG/M2, PROPHASE: QD ON DAYS 1-2, BID ON DAYS 3-5
     Route: 048
  9. CYTARABINE. [Suspect]
     Active Substance: CYTARABINE
     Indication: ANAPLASTIC LARGE-CELL LYMPHOMA
     Dosage: 150 MG/M2, OVER 1-30 MINUTES Q12 HOURS ON DAYS 4 AND 5 (TOTAL 4 DOSES) CYCLIC
     Route: 042
     Dates: start: 20181206, end: 20181207
  10. CYTARABINE. [Suspect]
     Active Substance: CYTARABINE
     Dosage: PROPHASE: 15-24MG ON DAY 1 (AGE BASED DOSING)
     Route: 037
  11. METHOTREXATE SODIUM. [Suspect]
     Active Substance: METHOTREXATE SODIUM
     Indication: ANAPLASTIC LARGE-CELL LYMPHOMA
     Dosage: 3000 MG/M2, OVER 3 HOURS ON DAY 1, CYCLIC
     Route: 042
     Dates: start: 20181203, end: 20181203
  12. IFOSFAMIDE. [Suspect]
     Active Substance: IFOSFAMIDE
     Indication: ANAPLASTIC LARGE-CELL LYMPHOMA
     Dosage: 800 MG/M2, OVER 60 MIN ON DAYS 1-5, CYCLIC
     Route: 042
     Dates: start: 20181203, end: 20181207

REACTIONS (3)
  - Oral pain [Recovered/Resolved with Sequelae]
  - Decreased appetite [Recovered/Resolved with Sequelae]
  - Stomatitis [Recovered/Resolved with Sequelae]

NARRATIVE: CASE EVENT DATE: 20181213
